FAERS Safety Report 10620027 (Version 1)
Quarter: 2014Q4

REPORT INFORMATION
  Report Type: Spontaneous
  Country: US (occurrence: None)
  Receive Date: 20141201
  Receipt Date: 20141201
  Transmission Date: 20150529
  Serious: Yes (Other)
  Sender: FDA-Public Use
  Company Number: None

PATIENT
  Age: 61 Year
  Sex: Male
  Weight: 94.35 kg

DRUGS (1)
  1. LISINOPRIL. [Suspect]
     Active Substance: LISINOPRIL
     Indication: HYPERTENSION
     Dosage: 1 TABLET ONCE DAILY TAKEN BY MOUTH
     Route: 048

REACTIONS (7)
  - Headache [None]
  - Blood pressure increased [None]
  - Fatigue [None]
  - Aggression [None]
  - Product substitution issue [None]
  - Drug ineffective [None]
  - Feeling hot [None]

NARRATIVE: CASE EVENT DATE: 20141122
